FAERS Safety Report 7897812-9 (Version None)
Quarter: 2011Q4

REPORT INFORMATION
  Report Type: 
  Country: None (occurrence: None)
  Receive Date: 20111028
  Receipt Date: 20110718
  Transmission Date: 20120403
  Serious: Yes (Other)
  Sender: FDA-Public Use
  Company Number: PHHY2011US64642

PATIENT
  Age: 41 Year
  Sex: Male

DRUGS (4)
  1. OXCARBAZEPINE [Suspect]
  2. NEXIUM [Concomitant]
  3. TRILEPTAL [Suspect]
     Indication: BIPOLAR DISORDER
     Dates: start: 20080101
  4. LORATADINE [Concomitant]

REACTIONS (5)
  - ANXIETY [None]
  - RHINORRHOEA [None]
  - SUICIDAL IDEATION [None]
  - SOMNOLENCE [None]
  - DRUG INEFFECTIVE [None]
